FAERS Safety Report 5262085-2 (Version None)
Quarter: 2007Q1

REPORT INFORMATION
  Report Type: 
  Country: None (occurrence: None)
  Receive Date: 20070311
  Receipt Date: 20070228
  Transmission Date: 20070707
  Serious: Yes (Other)
  Sender: FDA-Public Use
  Company Number: 2006UW21787

PATIENT
  Age: 32 Year
  Sex: Female
  Weight: 100 kg

DRUGS (8)
  1. SEROQUEL [Suspect]
     Indication: SCHIZOPHRENIA, PARANOID TYPE
     Route: 048
     Dates: start: 19970101
  2. CLOZARIL [Concomitant]
     Dates: start: 19990101
  3. GEODON [Concomitant]
     Dates: start: 20050101
  4. HALDOL [Concomitant]
     Dates: start: 19910101
  5. NAVANE [Concomitant]
     Dates: start: 19960101
  6. RISPERDAL [Concomitant]
     Dates: start: 19950101
  7. ZYPREXA [Concomitant]
     Dates: start: 20050101
  8. ACTIVAN [Concomitant]
     Dates: start: 20060101

REACTIONS (2)
  - DIABETES MELLITUS [None]
  - SCHIZOPHRENIA, PARANOID TYPE [None]
